FAERS Safety Report 4622146-5 (Version None)
Quarter: 2005Q1

REPORT INFORMATION
  Report Type: 
  Country: None (occurrence: None)
  Receive Date: 20050328
  Receipt Date: 20050318
  Transmission Date: 20050727
  Serious: Yes (Other)
  Sender: FDA-Public Use
  Company Number: 2005-03-1454

PATIENT
  Age: 69 Year
  Sex: Male

DRUGS (1)
  1. BETAMETHASONE SODIUM PHOSPHATE [Suspect]
     Dosage: UNKNOWN OPHTHALMIC
     Route: 047
     Dates: end: 20040101

REACTIONS (6)
  - CORNEAL EPITHELIUM DISORDER [None]
  - CORNEAL OPACITY [None]
  - CORNEAL PERFORATION [None]
  - CORNEAL ULCER [None]
  - GRAFT COMPLICATION [None]
  - IRIDOCELE [None]
